FAERS Safety Report 4360943-4 (Version None)
Quarter: 2004Q2

REPORT INFORMATION
  Report Type: 
  Country: None (occurrence: None)
  Receive Date: 20040517
  Receipt Date: 20040504
  Transmission Date: 20050107
  Serious: Yes (Other)
  Sender: FDA-Public Use
  Company Number: 2004021014

PATIENT
  Age: 60 Year
  Sex: Male

DRUGS (4)
  1. DOXAZOSIN (DOXAZOSIN) [Suspect]
     Indication: BENIGN PROSTATIC HYPERPLASIA
     Dosage: 4 MG (4 MG, 1 IN 1 D), ORAL
     Route: 048
     Dates: start: 20010801
  2. OMEPRAZOLE [Concomitant]
  3. LOSARTAN (LOSARTAN) [Concomitant]
  4. INDAPAMIDE [Concomitant]

REACTIONS (4)
  - BLOOD PRESSURE INCREASED [None]
  - NASAL CONGESTION [None]
  - PROSTATIC DISORDER [None]
  - RHINITIS [None]
